FAERS Safety Report 6652328-2 (Version None)
Quarter: 2010Q1

REPORT INFORMATION
  Report Type: 
  Country: None (occurrence: None)
  Receive Date: 20100325
  Receipt Date: 20091222
  Transmission Date: 20100710
  Serious: Yes (Hospitalization, Disabling, Other)
  Sender: FDA-Public Use
  Company Number: PHHY2009DE57650

PATIENT
  Sex: Female
  Weight: 82 kg

DRUGS (9)
  1. ALISKIREN ALI+ [Suspect]
     Indication: HYPERTENSION
     Dosage: UNK
     Dates: start: 20081121
  2. METOPROLOL [Suspect]
     Dosage: 142.5MG PER DAY
  3. PANTOPRAZOLE [Suspect]
     Dosage: 40MG PER DAY
  4. ASPIRIN [Suspect]
     Dosage: 100MG PER DAY
  5. RAMIPRIL [Suspect]
     Dosage: 10MG PER DAY
  6. TORASEMIDE [Suspect]
     Dosage: 10MG PER DAY
  7. AMANTADINE HCL [Suspect]
     Dosage: 100MG PER DAY
  8. FLUVASTATIN [Suspect]
     Dosage: 80MG PER DAY
  9. SYMBICORT [Suspect]
     Dosage: UNK

REACTIONS (5)
  - CORONARY ARTERY DISEASE [None]
  - CORONARY ARTERY OCCLUSION [None]
  - CORONARY ARTERY STENOSIS [None]
  - DIABETES MELLITUS [None]
  - VASCULAR GRAFT [None]
